FAERS Safety Report 9260854 (Version 2)
Quarter: 2013Q2

REPORT INFORMATION
  Report Type: Spontaneous
  Country: US (occurrence: US)
  Receive Date: 20130429
  Receipt Date: 20130621
  Transmission Date: 20140414
  Serious: Yes (Hospitalization, Other)
  Sender: FDA-Public Use
  Company Number: US-PFIZER INC-2013131099

PATIENT
  Age: 23 Year
  Sex: Female

DRUGS (3)
  1. XELJANZ [Suspect]
     Dosage: UNK
  2. LYRICA [Concomitant]
     Indication: PAIN
     Dosage: 150MG DAILY
     Dates: start: 2012
  3. LEXAPRO [Concomitant]
     Indication: DEPRESSION
     Dosage: 10MG DAILY
     Dates: start: 2012

REACTIONS (3)
  - Intracranial pressure increased [Recovered/Resolved]
  - Papilloedema [Unknown]
  - Visual impairment [Unknown]
